FAERS Safety Report 23063396 (Version 1)
Quarter: 2023Q4

REPORT INFORMATION
  Report Type: Spontaneous
  Country: US (occurrence: None)
  Receive Date: 20231012
  Receipt Date: 20231012
  Transmission Date: 20240109
  Serious: Yes (Hospitalization, Other)
  Sender: FDA-Public Use
  Company Number: None

PATIENT
  Age: 50 Year
  Sex: Female
  Weight: 67.5 kg

DRUGS (6)
  1. PREGABALIN [Suspect]
     Active Substance: PREGABALIN
     Indication: Neuralgia
     Dosage: FREQUENCY : 3 TIMES A DAY;?
     Route: 048
     Dates: start: 20220722, end: 20230918
  2. PREGABALIN [Suspect]
     Active Substance: PREGABALIN
     Indication: Back pain
  3. PREGABALIN [Suspect]
     Active Substance: PREGABALIN
     Indication: Neuralgia
     Dosage: FREQUENCY : 3 TIMES A DAY;?
     Route: 048
  4. PREGABALIN [Suspect]
     Active Substance: PREGABALIN
     Indication: Back pain
  5. LEVOTHYROXINE [Concomitant]
     Active Substance: LEVOTHYROXINE
  6. DEVICE [Concomitant]
     Active Substance: DEVICE

REACTIONS (4)
  - Menopause [None]
  - Asthenia [None]
  - Circulatory collapse [None]
  - Loss of consciousness [None]

NARRATIVE: CASE EVENT DATE: 20230417
